FAERS Safety Report 15743792 (Version 1)
Quarter: 2018Q4

REPORT INFORMATION
  Report Type: Spontaneous
  Country: US (occurrence: US)
  Receive Date: 20181220
  Receipt Date: 20181220
  Transmission Date: 20190205
  Serious: Yes (Other)
  Sender: FDA-Public Use
  Company Number: US-ORPHAN EUROPE-2060416

PATIENT
  Age: 13 Year
  Sex: Female

DRUGS (2)
  1. CYSTADANE [Suspect]
     Active Substance: BETAINE
     Indication: PRODUCT USED FOR UNKNOWN INDICATION
     Route: 048
  2. MUCINEX [Concomitant]
     Active Substance: GUAIFENESIN
     Dates: start: 20181210, end: 20181210

REACTIONS (4)
  - Sneezing [Unknown]
  - Anaphylactic reaction [Unknown]
  - Urticaria [Unknown]
  - Nasal congestion [Unknown]

NARRATIVE: CASE EVENT DATE: 201812
